FAERS Safety Report 10178243 (Version 1)
Quarter: 2014Q2

REPORT INFORMATION
  Report Type: Spontaneous
  Country: FR (occurrence: FR)
  Receive Date: 20140519
  Receipt Date: 20140519
  Transmission Date: 20141212
  Serious: Yes (Hospitalization)
  Sender: FDA-Public Use
  Company Number: PHHY2014FR059260

PATIENT
  Age: 76 Year
  Sex: Female

DRUGS (10)
  1. ESIDREX [Suspect]
     Indication: HYPERTENSION
     Dosage: 12.5 MG, QD
     Route: 048
     Dates: start: 20140212, end: 20140215
  2. PARACETAMOL 1A PHARMA [Suspect]
     Indication: PAIN
     Dosage: 3 G, QD
     Route: 048
     Dates: start: 20140212, end: 20140213
  3. TAHOR [Suspect]
     Indication: DYSLIPIDAEMIA
     Dosage: 10 MG, QD
     Route: 048
     Dates: start: 20140211, end: 20140329
  4. KARDEGIC [Suspect]
     Indication: TRANSIENT ISCHAEMIC ATTACK
     Dosage: 160 MG, QD
     Route: 048
     Dates: start: 20140215, end: 20140322
  5. INEXIUM//ESOMEPRAZOLE MAGNESIUM [Suspect]
     Indication: PROPHYLAXIS AGAINST GASTROINTESTINAL ULCER
     Dosage: 20 MG, QD
     Route: 048
     Dates: start: 20140211, end: 20140329
  6. ASPEGIC [Suspect]
     Indication: PAIN
     Dosage: 250 MG, QD
     Route: 048
     Dates: start: 20140212, end: 20140215
  7. ENALAPRIL [Suspect]
     Indication: HYPERTENSION
     Dosage: 20 MG, QD
     Route: 048
     Dates: start: 20140212, end: 20140215
  8. LOVENOX [Concomitant]
     Indication: PROPHYLAXIS
     Dosage: UNK UKN, UNK (FOUR DAYS)
     Route: 058
  9. NERISONE [Concomitant]
     Dosage: UNK UKN, BID
  10. CORENITEC [Concomitant]
     Dosage: 1 DF, QD (ENAL 20 MG AND HCTZ 12.5 MG)

REACTIONS (4)
  - Pancreatitis acute [Recovered/Resolved]
  - Rash erythematous [Recovered/Resolved]
  - Rash maculo-papular [None]
  - Hypersensitivity [None]
